FAERS Safety Report 10052176 (Version 1)
Quarter: 2014Q2

REPORT INFORMATION
  Report Type: Spontaneous
  Country: US (occurrence: None)
  Receive Date: 20140401
  Receipt Date: 20140401
  Transmission Date: 20141212
  Serious: Yes (Other)
  Sender: FDA-Public Use
  Company Number: None

PATIENT
  Age: 73 Year
  Sex: Female

DRUGS (2)
  1. LIPOSOMAL DOXORUBICIN [Suspect]
     Indication: NEOPLASM MALIGNANT
     Dates: start: 20131119
  2. ONDANSETRON [Concomitant]

REACTIONS (3)
  - Flushing [None]
  - Back pain [None]
  - Hypertension [None]
